FAERS Safety Report 18774327 (Version 2)
Quarter: 2021Q1

REPORT INFORMATION
  Report Type: Spontaneous
  Country: US (occurrence: US)
  Receive Date: 20210122
  Receipt Date: 20210312
  Transmission Date: 20210419
  Serious: No
  Sender: FDA-Public Use
  Company Number: US-KARYOPHARM-2020KPT001480

PATIENT

DRUGS (2)
  1. XPOVIO [Suspect]
     Active Substance: SELINEXOR
     Indication: PLASMA CELL MYELOMA
     Dosage: 80 MG, WEEKLY
     Route: 048
     Dates: start: 20200813
  2. VARUBI [ROLAPITANT HYDROCHLORIDE MONOHYDRATE] [Concomitant]
     Indication: PRODUCT USED FOR UNKNOWN INDICATION
     Dosage: 180 MG, 1X/2 WEEKS
     Route: 048
     Dates: start: 20200813

REACTIONS (1)
  - Dehydration [Unknown]

NARRATIVE: CASE EVENT DATE: 202012
